FAERS Safety Report 23455397 (Version 1)
Quarter: 2024Q1

REPORT INFORMATION
  Report Type: Other
  Country: PT (occurrence: PT)
  Receive Date: 20240130
  Receipt Date: 20240130
  Transmission Date: 20240410
  Serious: Yes (Other)
  Sender: FDA-Public Use
  Company Number: PT-SSPHARMA-2024PTSSP00004

PATIENT
  Age: 66 Year
  Sex: Male

DRUGS (6)
  1. ROCALTROL [Suspect]
     Active Substance: CALCITRIOL
     Indication: Vitamin supplementation
     Dosage: 1 CAPSULE AT NIGHT
     Route: 048
     Dates: start: 20231113, end: 20231120
  2. CARBONATO DE CALCIO [Concomitant]
     Indication: Product used for unknown indication
  3. SEVELAMERO [Concomitant]
     Indication: Product used for unknown indication
  4. LERCANIDIPINE [Concomitant]
     Active Substance: LERCANIDIPINE
     Indication: Product used for unknown indication
  5. EPOETINA ALFA [Concomitant]
     Indication: Product used for unknown indication
     Dosage: EVERY 15 DAYS
  6. Complexo B + Biotina [Concomitant]
     Indication: Product used for unknown indication

REACTIONS (1)
  - Malaise [Recovered/Resolved]

NARRATIVE: CASE EVENT DATE: 20231113
